FAERS Safety Report 7028396-5 (Version None)
Quarter: 2010Q4

REPORT INFORMATION
  Report Type: 
  Country: None (occurrence: None)
  Receive Date: 20101005
  Receipt Date: 20100923
  Transmission Date: 20110411
  Serious: Yes (Hospitalization, Other)
  Sender: FDA-Public Use
  Company Number: BR-PFIZER INC-2010121438

PATIENT
  Age: 84 Year
  Sex: Male
  Weight: 75 kg

DRUGS (10)
  1. LYRICA [Suspect]
     Indication: NEURALGIA
     Dosage: 75 MG, 1X/DAY
     Route: 048
     Dates: start: 20091101, end: 20100901
  2. LYRICA [Suspect]
     Indication: DIABETIC NEUROPATHY
  3. MINIDIAB [Concomitant]
     Indication: DIABETES MELLITUS
     Dosage: UNK
     Dates: start: 20020101
  4. LASIX [Concomitant]
     Dosage: UNK
     Dates: start: 20020101
  5. CALCITRIOL [Concomitant]
     Indication: BLOOD PARATHYROID HORMONE
     Dosage: UNK
     Dates: start: 20100801
  6. VASOGARD [Concomitant]
     Indication: VENOUS THROMBOSIS
     Dosage: UNK
     Dates: start: 20020101
  7. VIVACOR [Concomitant]
     Indication: BLOOD CHOLESTEROL INCREASED
     Dosage: UNK
     Dates: start: 20080101
  8. SOMALGIN [Concomitant]
     Dosage: 100MG
     Dates: start: 20020101
  9. SECOTEX [Concomitant]
     Indication: PROSTATOMEGALY
     Dosage: UNK
     Dates: start: 20040101
  10. AVODART [Concomitant]
     Indication: PROSTATOMEGALY
     Dosage: UNK
     Dates: start: 20040101

REACTIONS (5)
  - DEHYDRATION [None]
  - HALLUCINATION, VISUAL [None]
  - POOR QUALITY SLEEP [None]
  - SLEEP TALKING [None]
  - SWELLING [None]
